FAERS Safety Report 16318937 (Version 1)
Quarter: 2019Q2

REPORT INFORMATION
  Report Type: Spontaneous
  Country: ES (occurrence: ES)
  Receive Date: 20190516
  Receipt Date: 20190516
  Transmission Date: 20190711
  Serious: Yes (Life-Threatening, Hospitalization)
  Sender: FDA-Public Use
  Company Number: ES-ROCHE-2318478

PATIENT
  Age: 72 Year
  Sex: Female
  Weight: 51 kg

DRUGS (1)
  1. CELLCEPT [Suspect]
     Active Substance: MYCOPHENOLATE MOFETIL\MYCOPHENOLATE MOFETIL HYDROCHLORIDE
     Indication: RENAL VASCULITIS
     Route: 048
     Dates: start: 20060403

REACTIONS (8)
  - Aphthous ulcer [Not Recovered/Not Resolved]
  - Facial pain [Not Recovered/Not Resolved]
  - Haematoma [Not Recovered/Not Resolved]
  - Sepsis [Recovered/Resolved with Sequelae]
  - Skin ulcer [Not Recovered/Not Resolved]
  - Swelling face [Recovering/Resolving]
  - Pyrexia [Recovered/Resolved with Sequelae]
  - Skin infection [Not Recovered/Not Resolved]

NARRATIVE: CASE EVENT DATE: 20180601
